FAERS Safety Report 8540294-4 (Version None)
Quarter: 2012Q3

REPORT INFORMATION
  Report Type: 
  Country: None (occurrence: None)
  Receive Date: 20120726
  Receipt Date: 20120719
  Transmission Date: 20120928
  Serious: Yes (Death)
  Sender: FDA-Public Use
  Company Number: US-ROCHE-1090634

PATIENT
  Sex: Female

DRUGS (1)
  1. XELODA [Suspect]
     Indication: BILE DUCT CANCER
     Route: 048
     Dates: start: 20120101, end: 20120202

REACTIONS (2)
  - DIARRHOEA [None]
  - HEPATIC FAILURE [None]
